FAERS Safety Report 15570554 (Version 1)
Quarter: 2018Q4

REPORT INFORMATION
  Report Type: Spontaneous
  Country: TR (occurrence: TR)
  Receive Date: 20181031
  Receipt Date: 20181031
  Transmission Date: 20190205
  Serious: Yes (Hospitalization)
  Sender: FDA-Public Use
  Company Number: TR-ASTRAZENECA-2018SF40908

PATIENT
  Age: 20584 Day
  Sex: Female
  Weight: 88 kg

DRUGS (2)
  1. FORZIGA [Suspect]
     Active Substance: DAPAGLIFLOZIN
     Indication: TYPE 2 DIABETES MELLITUS
     Route: 048
  2. PERINDOPRIL [Concomitant]
     Active Substance: PERINDOPRIL
     Indication: HYPERTENSION
     Dosage: 1X5 MG

REACTIONS (1)
  - Ketosis [Recovered/Resolved]

NARRATIVE: CASE EVENT DATE: 20181009
